FAERS Safety Report 19883225 (Version 1)
Quarter: 2021Q3

REPORT INFORMATION
  Report Type: Spontaneous
  Country: US (occurrence: US)
  Receive Date: 20210926
  Receipt Date: 20210926
  Transmission Date: 20211014
  Serious: No
  Sender: FDA-Public Use
  Company Number: US-SA-2021SA314226

PATIENT
  Age: 36 Year
  Sex: Male

DRUGS (5)
  1. IBUPROFEN. [Concomitant]
     Active Substance: IBUPROFEN
     Dosage: POWDER
  2. MELATONIN [Concomitant]
     Active Substance: MELATONIN
     Dosage: POWDER
  3. DUPIXENT [Suspect]
     Active Substance: DUPILUMAB
     Indication: NASAL POLYPS
     Dosage: 300 MG, QOW
     Route: 058
     Dates: start: 20210902
  4. ALLEGRA D?12 HOUR [Concomitant]
     Active Substance: FEXOFENADINE HYDROCHLORIDE\PSEUDOEPHEDRINE HYDROCHLORIDE
     Indication: HYPERSENSITIVITY
  5. TYLENOL [Concomitant]
     Active Substance: ACETAMINOPHEN

REACTIONS (8)
  - Migraine [Unknown]
  - Joint stiffness [Unknown]
  - Condition aggravated [Unknown]
  - Sinus disorder [Unknown]
  - Ageusia [Unknown]
  - Rhinorrhoea [Unknown]
  - Drug ineffective [Unknown]
  - Anosmia [Unknown]

NARRATIVE: CASE EVENT DATE: 202109
